FAERS Safety Report 23903872 (Version 1)
Quarter: 2024Q2

REPORT INFORMATION
  Report Type: Spontaneous
  Country: JP (occurrence: JP)
  Receive Date: 20240527
  Receipt Date: 20240527
  Transmission Date: 20240716
  Serious: Yes (Hospitalization, Other)
  Sender: FDA-Public Use
  Company Number: JP-GLAXOSMITHKLINE-JP2024JPN063057

PATIENT

DRUGS (1)
  1. VALTREX [Suspect]
     Active Substance: VALACYCLOVIR HYDROCHLORIDE
     Indication: Rash vesicular
     Dosage: STANDARD DOSE

REACTIONS (8)
  - Nephropathy toxic [Recovering/Resolving]
  - Toxic encephalopathy [Recovering/Resolving]
  - Neurotoxicity [Recovering/Resolving]
  - Loss of consciousness [Recovering/Resolving]
  - Renal impairment [Unknown]
  - Encephalitis [Unknown]
  - Altered state of consciousness [Recovered/Resolved]
  - Memory impairment [Recovered/Resolved]
